FAERS Safety Report 5314937-2 (Version None)
Quarter: 2007Q2

REPORT INFORMATION
  Report Type: 
  Country: None (occurrence: None)
  Receive Date: 20070426
  Receipt Date: 20070417
  Transmission Date: 20071010
  Serious: Yes (Hospitalization)
  Sender: FDA-Public Use
  Company Number: FABR-11969

PATIENT
  Age: 46 Year
  Sex: Male

DRUGS (4)
  1. FABRAZYME [Suspect]
     Indication: FABRY'S DISEASE
     Dosage: 1 MG/KG QOD IV
     Route: 042
     Dates: start: 19980603, end: 19981002
  2. FABRAZYME [Suspect]
     Indication: FABRY'S DISEASE
     Dosage: 1 MG/KG Q2WKS IV
     Route: 042
     Dates: start: 20000714, end: 20001023
  3. FABRAZYME [Suspect]
     Indication: FABRY'S DISEASE
     Dosage: 1 MG/KG Q2WKS IV
     Route: 042
     Dates: start: 20020531, end: 20030627
  4. FABRAZYME [Suspect]
     Indication: FABRY'S DISEASE

REACTIONS (6)
  - ANASTOMOTIC LEAK [None]
  - COMPLICATIONS OF TRANSPLANTED KIDNEY [None]
  - KLEBSIELLA INFECTION [None]
  - RENAL FAILURE [None]
  - RENAL TRANSPLANT [None]
  - TRANSPLANT FAILURE [None]
